FAERS Safety Report 22310301 (Version 2)
Quarter: 2023Q2

REPORT INFORMATION
  Report Type: Spontaneous
  Country: US (occurrence: US)
  Receive Date: 20230511
  Receipt Date: 20230516
  Transmission Date: 20230721
  Serious: No
  Sender: FDA-Public Use
  Company Number: US-ABBVIE-4757451

PATIENT
  Sex: Female
  Weight: 48.987 kg

DRUGS (12)
  1. CREON [Suspect]
     Active Substance: PANCRELIPASE AMYLASE\PANCRELIPASE LIPASE\PANCRELIPASE PROTEASE
     Indication: Pancreatic failure
     Dosage: FREQUENCY: 1 CAPSULE WITH MEAL AND 1 WITH SNACK, FORM STRENGTH: 36000 UNIT,??FIRST ADMIN DATE: 03...
     Route: 048
  2. CREON [Suspect]
     Active Substance: PANCRELIPASE AMYLASE\PANCRELIPASE LIPASE\PANCRELIPASE PROTEASE
     Indication: Pancreatic failure
     Dosage: FREQUENCY:2 CAPSULES WITH MEAL 1 WITH SNACK, FORM STRENGTH: 36000 UNIT,?FIRST ADMIN DATE: 17 MAR ...
     Route: 048
  3. VERAPAMIL [Concomitant]
     Active Substance: VERAPAMIL HYDROCHLORIDE
     Indication: Blood pressure measurement
  4. Fleckanide [Concomitant]
     Indication: Blood pressure measurement
  5. PANTOPRAZOLE [Concomitant]
     Active Substance: PANTOPRAZOLE
     Indication: Dyspepsia
  6. TYLENOL [Concomitant]
     Active Substance: ACETAMINOPHEN
     Indication: Arthralgia
  7. METAMUCIL [Concomitant]
     Active Substance: PLANTAGO SEED
     Indication: Product used for unknown indication
  8. GABAPENTIN [Concomitant]
     Active Substance: GABAPENTIN
     Indication: Arthritis
  9. Sertraline - Zoloft [Concomitant]
     Indication: Anxiety
  10. ZOLOFT [Concomitant]
     Active Substance: SERTRALINE HYDROCHLORIDE
     Indication: Anxiety
  11. ATORVASTATIN [Concomitant]
     Active Substance: ATORVASTATIN
     Indication: Blood cholesterol
  12. SIMVASTATIN [Concomitant]
     Active Substance: SIMVASTATIN
     Indication: Blood cholesterol

REACTIONS (6)
  - Colitis ulcerative [Not Recovered/Not Resolved]
  - Weight decreased [Not Recovered/Not Resolved]
  - Constipation [Not Recovered/Not Resolved]
  - Gastrointestinal disorder [Unknown]
  - Dyspepsia [Unknown]
  - Adverse food reaction [Unknown]

NARRATIVE: CASE EVENT DATE: 20230101
